FAERS Safety Report 4654391-7 (Version None)
Quarter: 2005Q2

REPORT INFORMATION
  Report Type: 
  Country: None (occurrence: None)
  Receive Date: 20050506
  Receipt Date: 20050425
  Transmission Date: 20051028
  Serious: Yes (Hospitalization)
  Sender: FDA-Public Use
  Company Number: FR-ABBOTT-05P-056-0298407-00

PATIENT
  Age: 30 Year
  Sex: Female

DRUGS (14)
  1. DEPAKOTE [Suspect]
     Indication: DRUG USE FOR UNKNOWN INDICATION
     Route: 048
     Dates: start: 20050128, end: 20050206
  2. DEPAKOTE [Suspect]
     Route: 048
     Dates: start: 20050126, end: 20050126
  3. DEPAKOTE [Suspect]
     Route: 048
     Dates: start: 20050127, end: 20050127
  4. CYAMEMAZINE [Suspect]
     Indication: DRUG USE FOR UNKNOWN INDICATION
     Route: 048
     Dates: start: 20050129, end: 20050129
  5. CYAMEMAZINE [Suspect]
     Route: 048
     Dates: start: 20050124, end: 20050124
  6. CYAMEMAZINE [Suspect]
     Route: 048
     Dates: start: 20050125, end: 20050125
  7. CYAMEMAZINE [Suspect]
     Route: 048
     Dates: start: 20050126, end: 20050127
  8. CYAMEMAZINE [Suspect]
     Route: 048
     Dates: start: 20050128, end: 20050128
  9. CYAMEMAZINE [Suspect]
     Route: 048
     Dates: start: 20050201, end: 20050204
  10. CYAMEMAZINE [Suspect]
     Route: 048
     Dates: start: 20050205, end: 20050206
  11. CLONAZEPAM [Suspect]
     Indication: DRUG USE FOR UNKNOWN INDICATION
     Route: 048
     Dates: start: 20050129, end: 20050203
  12. CLONAZEPAM [Suspect]
     Route: 048
     Dates: start: 20050125, end: 20050128
  13. CLONAZEPAM [Suspect]
     Route: 048
     Dates: start: 20050204, end: 20050206
  14. AMPHOTERICIN B [Suspect]
     Indication: ORAL CANDIDIASIS
     Route: 048
     Dates: start: 20050129, end: 20050204

REACTIONS (4)
  - EOSINOPHILIA [None]
  - NEUTROPENIA [None]
  - ORAL CANDIDIASIS [None]
  - TOXIC SKIN ERUPTION [None]
